FAERS Safety Report 6783646-5 (Version None)
Quarter: 2010Q2

REPORT INFORMATION
  Report Type: 
  Country: None (occurrence: None)
  Receive Date: 20100622
  Receipt Date: 20100611
  Transmission Date: 20101027
  Serious: Yes (Hospitalization)
  Sender: FDA-Public Use
  Company Number: JP-ROCHE-699488

PATIENT
  Sex: Male

DRUGS (13)
  1. CAPECITABINE [Suspect]
     Indication: RECTAL CANCER
     Dosage: DRUG REPORTED: XELODA 300
     Route: 048
     Dates: start: 20090819, end: 20090901
  2. CAPECITABINE [Suspect]
     Route: 048
     Dates: start: 20090909, end: 20090922
  3. CAPECITABINE [Suspect]
     Route: 048
     Dates: start: 20090930, end: 20091013
  4. CAPECITABINE [Suspect]
     Route: 048
     Dates: start: 20091021, end: 20091103
  5. CAPECITABINE [Suspect]
     Route: 048
     Dates: start: 20091111, end: 20091124
  6. CAPECITABINE [Suspect]
     Route: 048
     Dates: start: 20091202, end: 20091215
  7. CAPECITABINE [Suspect]
     Route: 048
     Dates: start: 20091223, end: 20100105
  8. CAPECITABINE [Suspect]
     Route: 048
     Dates: start: 20100113, end: 20100126
  9. BERIZYM [Concomitant]
     Dosage: FORM: PERORAL AGENT
     Route: 048
     Dates: end: 20100201
  10. FOIPAN [Concomitant]
     Route: 048
     Dates: end: 20100201
  11. PYDOXAL [Concomitant]
     Dosage: DRUG REPORTED: PYDOXAL TAB
     Route: 048
     Dates: start: 20090819, end: 20100201
  12. DAI-KENCHU-TO [Concomitant]
     Dosage: FORM: PERORAL AGENT
     Route: 048
     Dates: end: 20100201
  13. UREPEARL [Concomitant]
     Dosage: FORM: OINTMENT AND CREAM.  DOSAGE WAS UNCERTAIN.
     Route: 003
     Dates: start: 20090819, end: 20100201

REACTIONS (2)
  - BILE DUCT STONE [None]
  - PALMAR-PLANTAR ERYTHRODYSAESTHESIA SYNDROME [None]
